FAERS Safety Report 7228402-9 (Version None)
Quarter: 2011Q1

REPORT INFORMATION
  Report Type: 
  Country: None (occurrence: None)
  Receive Date: 20110114
  Receipt Date: 20110105
  Transmission Date: 20110831
  Serious: Yes (Death, Life-Threatening, Other)
  Sender: FDA-Public Use
  Company Number: NL-GENZYME-CLOF-1001152

PATIENT
  Sex: Male
  Weight: 73.9 kg

DRUGS (20)
  1. ACYCLOVIR [Concomitant]
     Indication: PROPHYLAXIS
  2. PLATELETS, CONCENTRATED [Concomitant]
     Indication: PRODUCT USED FOR UNKNOWN INDICATION
     Dosage: UNK
     Dates: start: 20100708, end: 20100824
  3. CYTARABINE [Suspect]
     Indication: ACUTE MYELOID LEUKAEMIA
     Dosage: 100 MG/M2 CONT INFUS D1-10
     Route: 042
     Dates: start: 20100707, end: 20100716
  4. PARACETAMOL [Concomitant]
     Indication: PYREXIA
     Dosage: 500 MG, UNK
     Dates: start: 20100810, end: 20100824
  5. CASPOFUNGIN [Concomitant]
     Indication: FUNGAL TEST POSITIVE
     Dosage: 750 MG, TID
     Route: 042
     Dates: start: 20100812, end: 20100821
  6. CIPROXIN [Concomitant]
     Indication: PROPHYLAXIS
     Dosage: 500 MG, BID
     Route: 048
     Dates: start: 20100810, end: 20100820
  7. CASPOFUNGIN [Concomitant]
     Indication: CAECITIS
  8. SPIRONOLACTONE [Concomitant]
     Indication: ASCITES
     Dosage: UNK
     Dates: end: 20100820
  9. SPIRONOLACTONE [Concomitant]
     Indication: PLEURAL EFFUSION
  10. SPIRONOLACTONE [Concomitant]
     Indication: OEDEMA
  11. LEUCOVORIN CALCIUM [Concomitant]
     Indication: TOXOPLASMOSIS
     Dosage: UNK
     Dates: end: 20100824
  12. EVOLTRA [Suspect]
     Indication: ACUTE MYELOID LEUKAEMIA
     Dosage: 112 IV, D 2, 4, 6, 8 + 10
     Route: 042
     Dates: start: 20100708, end: 20100712
  13. KALIUMCHLORIDE [Concomitant]
     Indication: BLOOD POTASSIUM DECREASED
     Dosage: 20 MMOL/L, TID
     Route: 048
     Dates: start: 20100817, end: 20100822
  14. ACYCLOVIR [Concomitant]
     Indication: HERPES SIMPLEX
     Dosage: UNK
     Dates: start: 20100820, end: 20100821
  15. FIBRINOGEN [Concomitant]
     Indication: PRODUCT USED FOR UNKNOWN INDICATION
     Dosage: UNK
     Dates: start: 20100820, end: 20100821
  16. SULFADIAZINE [Concomitant]
     Indication: PRODUCT USED FOR UNKNOWN INDICATION
     Dosage: UNK
     Dates: end: 20100823
  17. PANTAZOL [Concomitant]
     Indication: PROPHYLAXIS
     Dosage: UNK
     Dates: start: 20100810, end: 20100824
  18. ZAVEDOS [Suspect]
     Indication: ACUTE MYELOID LEUKAEMIA
     Dosage: 10 MG/M2, D1,3 AND 5
     Route: 042
     Dates: start: 20100707, end: 20100711
  19. VANCOMYCIN [Concomitant]
     Indication: BACTERAEMIA
     Dosage: 1250 MG, UNK
     Route: 042
     Dates: start: 20100814, end: 20100817
  20. DI-ADRESON F [Concomitant]
     Indication: HISTIOCYTOSIS HAEMATOPHAGIC
     Dosage: UNK
     Dates: start: 20100819, end: 20100822

REACTIONS (14)
  - PYREXIA [None]
  - CEREBRAL HAEMORRHAGE [None]
  - HEMIPARESIS [None]
  - CAECITIS [None]
  - CEREBRAL FUNGAL INFECTION [None]
  - CARDIAC FAILURE [None]
  - CENTRAL NERVOUS SYSTEM LESION [None]
  - FEBRILE NEUTROPENIA [None]
  - RESTLESSNESS [None]
  - COMA [None]
  - INFECTION [None]
  - PANCYTOPENIA [None]
  - PULMONARY INFARCTION [None]
  - HEPATOMEGALY [None]
